FAERS Safety Report 22334879 (Version 1)
Quarter: 2023Q2

REPORT INFORMATION
  Report Type: Spontaneous
  Country: US (occurrence: US)
  Receive Date: 20230518
  Receipt Date: 20230518
  Transmission Date: 20230722
  Serious: No
  Sender: FDA-Public Use
  Company Number: US-TOLMAR, INC.-23US040490

PATIENT
  Age: 47 Year
  Sex: Male

DRUGS (2)
  1. KETOCONAZOLE [Suspect]
     Active Substance: KETOCONAZOLE
     Indication: Hair growth abnormal
     Dosage: AS DIRECTED ON BOTTLE
     Route: 003
     Dates: start: 202303
  2. FINASTERIDE [Suspect]
     Active Substance: FINASTERIDE
     Indication: Hair growth abnormal
     Dosage: UNK
     Route: 048
     Dates: start: 202303, end: 202304

REACTIONS (1)
  - Mood altered [Recovered/Resolved]
